FAERS Safety Report 7038466-3 (Version None)
Quarter: 2010Q4

REPORT INFORMATION
  Report Type: 
  Country: None (occurrence: None)
  Receive Date: 20101011
  Receipt Date: 20100620
  Transmission Date: 20110411
  Serious: Yes (Other)
  Sender: FDA-Public Use
  Company Number: US-PFIZER INC-2010077248

PATIENT
  Sex: Female

DRUGS (1)
  1. NEURONTIN [Suspect]
     Dosage: 300 MG, UNK

REACTIONS (6)
  - ANXIETY [None]
  - DIPLOPIA [None]
  - DISCOMFORT [None]
  - DIZZINESS [None]
  - HEADACHE [None]
  - VISION BLURRED [None]
